FAERS Safety Report 19813793 (Version 1)
Quarter: 2021Q3

REPORT INFORMATION
  Report Type: Spontaneous
  Country: PL (occurrence: PL)
  Receive Date: 20210909
  Receipt Date: 20210909
  Transmission Date: 20211014
  Serious: Yes (Other)
  Sender: FDA-Public Use
  Company Number: PL-AMGEN-POLSP2021135827

PATIENT
  Age: 70 Year
  Sex: Female
  Weight: 54 kg

DRUGS (4)
  1. VECTIBIX [Suspect]
     Active Substance: PANITUMUMAB
     Indication: RECTAL CANCER STAGE IV
     Dosage: UNK
     Route: 065
     Dates: start: 20190802, end: 202001
  2. OXALIPLATIN. [Concomitant]
     Active Substance: OXALIPLATIN
     Indication: RECTAL CANCER STAGE IV
     Dosage: UNK
     Dates: start: 20190802, end: 202001
  3. 5?FU [FLUOROURACIL] [Concomitant]
     Active Substance: FLUOROURACIL
     Indication: RECTAL CANCER STAGE IV
     Dosage: UNK
     Dates: start: 20190802, end: 202001
  4. FOLINIC ACID [Concomitant]
     Active Substance: LEUCOVORIN
     Indication: RECTAL CANCER STAGE IV
     Dosage: UNK
     Dates: start: 20190802, end: 202001

REACTIONS (6)
  - Neuropathy peripheral [Unknown]
  - Hypomagnesaemia [Unknown]
  - Skin toxicity [Unknown]
  - Asthenia [Recovering/Resolving]
  - Diarrhoea [Unknown]
  - Hypokalaemia [Unknown]

NARRATIVE: CASE EVENT DATE: 20210726
